FAERS Safety Report 23709223 (Version 1)
Quarter: 2024Q2

REPORT INFORMATION
  Report Type: Spontaneous
  Country: US (occurrence: None)
  Receive Date: 20240404
  Receipt Date: 20240404
  Transmission Date: 20240716
  Serious: No
  Sender: FDA-Public Use
  Company Number: None

PATIENT

DRUGS (2)
  1. BUPIVACAINE HYDROCHLORIDE [Suspect]
     Active Substance: BUPIVACAINE HYDROCHLORIDE\BUPIVACAINE HYDROCHLORIDE ANHYDROUS
     Dosage: OTHER ROUTE : INFLITRATION, NEVER BLOCK;?
     Route: 050
  2. ADENOSINE [Suspect]
     Active Substance: ADENOSINE
     Route: 042

REACTIONS (2)
  - Product label confusion [None]
  - Wrong drug [None]
